FAERS Safety Report 10013384 (Version 1)
Quarter: 2014Q1

REPORT INFORMATION
  Report Type: Spontaneous
  Country: BR (occurrence: BR)
  Receive Date: 20140314
  Receipt Date: 20140314
  Transmission Date: 20141002
  Serious: Yes (Hospitalization)
  Sender: FDA-Public Use
  Company Number: BR-ASTRAZENECA-2014SE17306

PATIENT
  Age: 64 Year
  Sex: Female
  Weight: 59 kg

DRUGS (6)
  1. ATENOLOL [Suspect]
     Indication: HYPERTENSION
     Route: 048
     Dates: start: 201209
  2. BRILINTA [Suspect]
     Indication: THROMBOSIS PROPHYLAXIS
     Route: 048
     Dates: start: 201303, end: 20140303
  3. SUSTRATE [Concomitant]
     Route: 048
     Dates: start: 201209
  4. METHYLDOPA [Concomitant]
     Route: 048
     Dates: start: 2012
  5. CAPTOPRIL [Concomitant]
     Route: 048
     Dates: start: 1984
  6. ASA [Concomitant]
     Route: 048
     Dates: start: 1984

REACTIONS (4)
  - Coronary artery occlusion [Recovered/Resolved]
  - Dyspnoea [Recovering/Resolving]
  - Lividity [Recovering/Resolving]
  - Off label use [Not Recovered/Not Resolved]
